FAERS Safety Report 18068200 (Version 1)
Quarter: 2020Q3

REPORT INFORMATION
  Report Type: Spontaneous
  Country: CA (occurrence: CA)
  Receive Date: 20200725
  Receipt Date: 20200725
  Transmission Date: 20201103
  Serious: Yes (Other)
  Sender: FDA-Public Use
  Company Number: CA-ACCORD-192502

PATIENT
  Age: 57 Year
  Sex: Female

DRUGS (9)
  1. DEXAMETHASONE. [Concomitant]
     Active Substance: DEXAMETHASONE
     Dosage: STARTING THE DAY PRIOR TO CHEMOTHERAPY
     Route: 048
  2. OXALIPLATIN. [Suspect]
     Active Substance: OXALIPLATIN
     Indication: COLON CANCER STAGE III
     Dosage: 21?DAY CYCLE
  3. METOCLOPRAMIDE. [Concomitant]
     Active Substance: METOCLOPRAMIDE
     Dosage: EVERY 4 H
     Route: 048
  4. FOLIC ACID. [Concomitant]
     Active Substance: FOLIC ACID
     Route: 048
  5. ONDANSETRON [Concomitant]
     Active Substance: ONDANSETRON
     Dosage: ON THE DAY OF CHEMOTHERAPY WITH ONE TABLET TAKEN ORALLY 30?60 MIN PRIOR TO CHEMOTHERAPY
     Route: 048
  6. CYANOCOBALAMIN/CYANOCOBALAMIN ZINC TANNATE/CYANOCOBALAMIN?TANNIN COMPLEX [Concomitant]
     Active Substance: CYANOCOBALAMIN
     Dosage: ONE TO TWO WEEKS PRIOR TO THE FIRST CYCLE OF PEMETREXED AND
     Route: 030
  7. OXALIPLATIN. [Suspect]
     Active Substance: OXALIPLATIN
     Indication: COLON CANCER STAGE III
     Dosage: 21?DAY CYCLE
  8. CYANOCOBALAMIN. [Concomitant]
     Active Substance: CYANOCOBALAMIN
     Dosage: ONE TO TWO WEEKS PRIOR TO THE FIRST CYCLE OF PEMETREXED AND
     Route: 030
  9. PEMETREXED. [Suspect]
     Active Substance: PEMETREXED
     Indication: COLON CANCER STAGE III
     Dosage: 21?DAY CYCLES
     Route: 042

REACTIONS (4)
  - Off label use [Unknown]
  - Condition aggravated [Unknown]
  - Neutrophil count decreased [Unknown]
  - Neuropathy peripheral [Unknown]
